FAERS Safety Report 10465724 (Version 1)
Quarter: 2014Q3

REPORT INFORMATION
  Report Type: Spontaneous
  Country: US (occurrence: US)
  Receive Date: 20140919
  Receipt Date: 20140919
  Transmission Date: 20150326
  Serious: Yes (Other)
  Sender: FDA-Public Use
  Company Number: US-GLAXOSMITHKLINE-A1089925A

PATIENT
  Sex: Female

DRUGS (5)
  1. HUMIRA [Suspect]
     Active Substance: ADALIMUMAB
     Indication: PSORIATIC ARTHROPATHY
     Dosage: 40MG EVERY TWO WEEKS
     Route: 065
     Dates: start: 2012, end: 201406
  2. ZYRTEC [Concomitant]
     Active Substance: CETIRIZINE HYDROCHLORIDE
  3. SORIATANE [Suspect]
     Active Substance: ACITRETIN
     Indication: PSORIASIS
     Route: 065
     Dates: start: 201310, end: 201404
  4. VITAMIN B [Concomitant]
     Active Substance: VITAMIN B
  5. VITAMIN C [Concomitant]
     Active Substance: ASCORBIC ACID

REACTIONS (10)
  - Blood pressure increased [Unknown]
  - Weight increased [Unknown]
  - Muscle rupture [Unknown]
  - Psoriasis [Unknown]
  - Exostosis [Unknown]
  - Skin infection [Unknown]
  - Hepatic enzyme increased [Recovered/Resolved]
  - Pain [Unknown]
  - Psoriatic arthropathy [Unknown]
  - Psoriasis [Unknown]

NARRATIVE: CASE EVENT DATE: 2013
